FAERS Safety Report 9279450 (Version 2)
Quarter: 2013Q2

REPORT INFORMATION
  Report Type: Spontaneous
  Country: US (occurrence: US)
  Receive Date: 20130508
  Receipt Date: 20130524
  Transmission Date: 20140414
  Serious: Yes (Other)
  Sender: FDA-Public Use
  Company Number: US-PFIZER INC-2013142477

PATIENT
  Sex: Female
  Weight: 90.7 kg

DRUGS (5)
  1. PREDNISONE [Suspect]
     Dosage: UNK
  2. LYRICA [Suspect]
     Indication: BACK PAIN
     Dosage: 100 MG, UNK
     Dates: start: 2005, end: 200809
  3. LYRICA [Suspect]
     Indication: SPONDYLITIS
  4. FENTANYL [Concomitant]
     Dosage: 75 MG, EVERY 72 HOURS
     Route: 062
  5. METHOTREXATE [Concomitant]
     Dosage: UNK

REACTIONS (3)
  - Osteonecrosis [Unknown]
  - Arthropathy [Unknown]
  - Back disorder [Unknown]
